FAERS Safety Report 21440029 (Version 1)
Quarter: 2022Q4

REPORT INFORMATION
  Report Type: Spontaneous
  Country: US (occurrence: None)
  Receive Date: 20221008
  Receipt Date: 20221008
  Transmission Date: 20230113
  Serious: Yes (Disabling, Other)
  Sender: FDA-Public Use
  Company Number: None

PATIENT
  Age: 54 Year
  Sex: Male
  Weight: 99 kg

DRUGS (1)
  1. HUMIRA [Suspect]
     Active Substance: ADALIMUMAB
     Indication: Psoriasis
     Dates: start: 20121001, end: 20191120

REACTIONS (5)
  - Fungal infection [None]
  - Disease complication [None]
  - Impaired work ability [None]
  - Latent tuberculosis [None]
  - Psoriatic arthropathy [None]

NARRATIVE: CASE EVENT DATE: 20191016
